FAERS Safety Report 22155047 (Version 1)
Quarter: 2023Q1

REPORT INFORMATION
  Report Type: Spontaneous
  Country: IN (occurrence: IN)
  Receive Date: 20230330
  Receipt Date: 20230330
  Transmission Date: 20230418
  Serious: Yes (Hospitalization, Other)
  Sender: FDA-Public Use
  Company Number: IN-Nexus Pharma-000186

PATIENT
  Age: 3 Decade
  Sex: Male

DRUGS (3)
  1. LEVETIRACETAM [Suspect]
     Active Substance: LEVETIRACETAM
     Indication: Seizure
  2. CLOBAZAM [Suspect]
     Active Substance: CLOBAZAM
     Indication: Seizure
  3. PHENYTOIN [Suspect]
     Active Substance: PHENYTOIN
     Indication: Seizure

REACTIONS (1)
  - Tubulointerstitial nephritis [Recovered/Resolved]
